FAERS Safety Report 6734573-0 (Version None)
Quarter: 2010Q2

REPORT INFORMATION
  Report Type: 
  Country: None (occurrence: None)
  Receive Date: 20100520
  Receipt Date: 20100421
  Transmission Date: 20101027
  Serious: No
  Sender: FDA-Public Use
  Company Number: US-ALLERGAN-1004788US

PATIENT
  Age: 85 Year
  Sex: Male

DRUGS (6)
  1. SANCTURA XR [Suspect]
     Indication: HYPERTONIC BLADDER
     Dosage: UNK
     Route: 048
  2. PAMELOR [Suspect]
     Indication: DRUG USE FOR UNKNOWN INDICATION
     Dosage: UNK
  3. MILK OF MAGNESIA TAB [Concomitant]
     Indication: CONSTIPATION
  4. PSYLLIUM [Concomitant]
     Indication: CONSTIPATION
  5. VITAMIN TAB [Concomitant]
  6. MINERALS NOS [Concomitant]

REACTIONS (4)
  - ARTHRALGIA [None]
  - CONSTIPATION [None]
  - GAIT DISTURBANCE [None]
  - MUSCULOSKELETAL STIFFNESS [None]
